FAERS Safety Report 8812335 (Version 3)
Quarter: 2012Q4

REPORT INFORMATION
  Report Type: 
  Country: US (occurrence: US)
  Receive Date: 20120927
  Receipt Date: 20121106
  Transmission Date: 20130627
  Serious: Yes (Death, Hospitalization, Other)
  Sender: FDA-Public Use
  Company Number: US-VERTEX PHARMACEUTICAL INC.-2012-021719

PATIENT
  Age: 64 Year
  Sex: Female

DRUGS (19)
  1. INCIVEK [Suspect]
     Indication: HEPATITIS C
     Dosage: UNK
     Route: 048
     Dates: start: 20120125, end: 20120417
  2. RIBAVIRIN [Suspect]
     Indication: HEPATITIS C
     Dosage: UNK
  3. RIBAVIRIN [Suspect]
     Dosage: 0.5 DF, UNK
     Dates: start: 20120418, end: 20120425
  4. PEGINTERFERON [Suspect]
     Indication: HEPATITIS C
     Dosage: UNK
     Dates: end: 20120425
  5. ALBUMIN [Concomitant]
  6. DESONIDE [Concomitant]
  7. FENTANYL [Concomitant]
  8. HYDROCORTISONE [Concomitant]
     Route: 042
  9. REGLAN                             /00041901/ [Concomitant]
  10. INSULIN [Concomitant]
  11. LEVOTHYROXINE [Concomitant]
  12. PROTONEX [Concomitant]
  13. SERTRALINE [Concomitant]
  14. MVI [Concomitant]
  15. NYSTATIN [Concomitant]
  16. VANCOMYCIN [Concomitant]
  17. TYLENOL /00020001/ [Concomitant]
  18. IBUPROFEN [Concomitant]
  19. VERSED [Concomitant]

REACTIONS (15)
  - Hypovolaemic shock [Fatal]
  - Generalised oedema [Fatal]
  - Septic shock [Unknown]
  - Pneumonia [Unknown]
  - Pleurisy [Unknown]
  - Leukocytosis [Unknown]
  - Hypertension [Unknown]
  - Lethargy [Unknown]
  - Rash [Unknown]
  - Anaemia [Unknown]
  - Diarrhoea [Unknown]
  - Pancytopenia [Unknown]
  - Mastocytosis [Unknown]
  - Renal failure [Unknown]
  - Hypokalaemia [Unknown]
